APPROVED DRUG PRODUCT: NESACAINE-MPF
Active Ingredient: CHLOROPROCAINE HYDROCHLORIDE
Strength: 3%
Dosage Form/Route: INJECTABLE;INJECTION
Application: N009435 | Product #004
Applicant: FRESENIUS KABI USA LLC
Approved: Approved Prior to Jan 1, 1982 | RLD: No | RS: No | Type: DISCN